FAERS Safety Report 25613515 (Version 2)
Quarter: 2025Q3

REPORT INFORMATION
  Report Type: Spontaneous
  Country: EG (occurrence: EG)
  Receive Date: 20250728
  Receipt Date: 20250730
  Transmission Date: 20251020
  Serious: Yes (Death)
  Sender: MERCK SHARP & DOHME LLC
  Company Number: EG-009507513-2313322

PATIENT
  Age: 21 Year
  Sex: Male

DRUGS (1)
  1. KEYTRUDA [Suspect]
     Active Substance: PEMBROLIZUMAB
     Indication: Squamous cell carcinoma of head and neck
     Dosage: 200 MG, Q3W
     Route: 042
     Dates: start: 20250714, end: 20250714

REACTIONS (1)
  - Mouth haemorrhage [Fatal]

NARRATIVE: CASE EVENT DATE: 20250722
